FAERS Safety Report 8212372-0 (Version None)
Quarter: 2012Q1

REPORT INFORMATION
  Report Type: 
  Country: None (occurrence: None)
  Receive Date: 20120315
  Receipt Date: 20120312
  Transmission Date: 20120608
  Serious: Yes (Death, Hospitalization, Other)
  Sender: FDA-Public Use
  Company Number: US-SANOFI-AVENTIS-2012SA011323

PATIENT
  Age: 60 Year
  Sex: Female
  Weight: 60.32 kg

DRUGS (17)
  1. ELOXATIN [Suspect]
     Indication: COLON CANCER
     Route: 041
     Dates: start: 20111123, end: 20111123
  2. LEVOTHYROXINE SODIUM [Concomitant]
  3. CITALOPRAM HYDROBROMIDE [Concomitant]
  4. ELOXATIN [Suspect]
     Route: 041
     Dates: start: 20111220, end: 20111220
  5. ELOXATIN [Suspect]
     Route: 041
     Dates: start: 20111220, end: 20111220
  6. FLUOROURACIL [Suspect]
     Dates: start: 20111207, end: 20111207
  7. METOPROLOL SUCCINATE [Concomitant]
  8. ELOXATIN [Suspect]
     Route: 041
     Dates: start: 20111207, end: 20111207
  9. ELOXATIN [Suspect]
     Route: 041
     Dates: start: 20111123, end: 20111123
  10. FLUOROURACIL [Suspect]
     Indication: COLON CANCER
     Dates: start: 20111123, end: 20111123
  11. SIMVASTATIN [Concomitant]
  12. XELODA [Suspect]
     Indication: COLON CANCER
     Dates: start: 20111201, end: 20111201
  13. PLAVIX [Concomitant]
  14. ELOXATIN [Suspect]
     Route: 041
     Dates: start: 20111220, end: 20111220
  15. ELOXATIN [Suspect]
     Route: 041
     Dates: start: 20111207, end: 20111207
  16. XELODA [Suspect]
     Dates: start: 20111201, end: 20111201
  17. SPIRIVA [Concomitant]

REACTIONS (5)
  - DIARRHOEA [None]
  - RENAL FAILURE [None]
  - DEATH [None]
  - SEPSIS [None]
  - NEUTROPENIA [None]
